FAERS Safety Report 8034059-X (Version None)
Quarter: 2011Q4

REPORT INFORMATION
  Report Type: 
  Country: None (occurrence: None)
  Receive Date: 20111202
  Receipt Date: 20100602
  Transmission Date: 20120403
  Serious: Yes (Hospitalization, Other)
  Sender: FDA-Public Use
  Company Number: 2010SP031305

PATIENT
  Age: 19 Hour
  Sex: Female
  Weight: 108.8633 kg

DRUGS (1)
  1. NUVARING [Suspect]
     Indication: CONTRACEPTION
     Dates: start: 20060101, end: 20060601

REACTIONS (4)
  - VAGINITIS BACTERIAL [None]
  - PULMONARY EMBOLISM [None]
  - LUNG INFILTRATION [None]
  - DEEP VEIN THROMBOSIS [None]
